FAERS Safety Report 12318492 (Version 5)
Quarter: 2017Q4

REPORT INFORMATION
  Report Type: Spontaneous
  Country: US (occurrence: US)
  Receive Date: 20160429
  Receipt Date: 20171031
  Transmission Date: 20180320
  Serious: Yes (Life-Threatening, Disabling, Other)
  Sender: FDA-Public Use
  Company Number: US-TAKEDA-2016TUS007348

PATIENT
  Sex: Female

DRUGS (6)
  1. PROTONIX                           /00661201/ [Concomitant]
     Active Substance: OMEPRAZOLE
     Dosage: 40 MG, UNK
     Route: 065
  2. NEXIUM [Concomitant]
     Active Substance: ESOMEPRAZOLE MAGNESIUM
     Dosage: 40 MG, UNK
     Route: 065
  3. PREVACID [Suspect]
     Active Substance: LANSOPRAZOLE
     Dosage: 15 MG, QD
     Route: 065
  4. EPIPEN [Concomitant]
     Active Substance: EPINEPHRINE
     Indication: HYPERSENSITIVITY
     Dosage: UNK
     Route: 065
  5. PREVACID [Suspect]
     Active Substance: LANSOPRAZOLE
     Indication: EROSIVE OESOPHAGITIS
     Dosage: 30 MG, UNK
     Route: 065
  6. PREDNISONE. [Concomitant]
     Active Substance: PREDNISONE
     Dosage: 10 MG, UNK
     Route: 065

REACTIONS (57)
  - Paranoia [Not Recovered/Not Resolved]
  - Social avoidant behaviour [Not Recovered/Not Resolved]
  - Anger [Not Recovered/Not Resolved]
  - Migraine [Recovered/Resolved]
  - Vaginal infection [Not Recovered/Not Resolved]
  - Eye pain [Unknown]
  - Breast tenderness [Unknown]
  - Circulatory collapse [Not Recovered/Not Resolved]
  - Amnesia [Not Recovered/Not Resolved]
  - Insomnia [Recovering/Resolving]
  - Hallucination [Not Recovered/Not Resolved]
  - Bruxism [Recovered/Resolved]
  - Hypovitaminosis [Not Recovered/Not Resolved]
  - Pelvic pain [Unknown]
  - Suicidal ideation [Not Recovered/Not Resolved]
  - Apathy [Not Recovered/Not Resolved]
  - Electrolyte depletion [Not Recovered/Not Resolved]
  - Chills [Not Recovered/Not Resolved]
  - Confusional state [Unknown]
  - Seizure [Recovered/Resolved]
  - Abnormal behaviour [Not Recovered/Not Resolved]
  - Fear [Not Recovered/Not Resolved]
  - Dementia [Recovered/Resolved]
  - Arthralgia [Not Recovered/Not Resolved]
  - Breath odour [Unknown]
  - Agitation [Unknown]
  - Thinking abnormal [Unknown]
  - Vision blurred [Unknown]
  - Breast enlargement [Unknown]
  - Nausea [Unknown]
  - Cognitive disorder [Not Recovered/Not Resolved]
  - Body temperature fluctuation [Not Recovered/Not Resolved]
  - Thought blocking [Recovered/Resolved]
  - Palpitations [Not Recovered/Not Resolved]
  - Nightmare [Recovered/Resolved]
  - Depression [Not Recovered/Not Resolved]
  - Limb discomfort [Not Recovered/Not Resolved]
  - Abnormal dreams [Unknown]
  - Anxiety [Unknown]
  - Dyspnoea [Unknown]
  - Balance disorder [Not Recovered/Not Resolved]
  - Aggression [Not Recovered/Not Resolved]
  - Depersonalisation/derealisation disorder [Unknown]
  - Dry eye [Unknown]
  - Disability [Not Recovered/Not Resolved]
  - Tremor [Not Recovered/Not Resolved]
  - Neck pain [Unknown]
  - Pollakiuria [Unknown]
  - Headache [Not Recovered/Not Resolved]
  - Personality change [Not Recovered/Not Resolved]
  - Injury [Not Recovered/Not Resolved]
  - Feeling abnormal [Recovering/Resolving]
  - Chest pain [Not Recovered/Not Resolved]
  - Muscle spasms [Recovered/Resolved]
  - Back pain [Unknown]
  - Dermatitis contact [Unknown]
  - Tinnitus [Unknown]
